FAERS Safety Report 20326842 (Version 1)
Quarter: 2022Q1

REPORT INFORMATION
  Report Type: Spontaneous
  Country: CA (occurrence: CA)
  Receive Date: 20220112
  Receipt Date: 20220112
  Transmission Date: 20220424
  Serious: Yes (Life-Threatening, Disabling)
  Sender: FDA-Public Use
  Company Number: CA-NOVARTISPH-NVSC2022CA005373

PATIENT
  Age: 46 Year
  Sex: Female

DRUGS (1)
  1. MAYZENT [Suspect]
     Active Substance: SIPONIMOD
     Indication: Multiple sclerosis
     Dosage: 8.0 MG, ONCE
     Route: 048

REACTIONS (4)
  - Incorrect disposal of product [Unknown]
  - Incorrect dose administered [Unknown]
  - Product selection error [Unknown]
  - Overdose [Unknown]
